FAERS Safety Report 7184202-X (Version None)
Quarter: 2010Q4

REPORT INFORMATION
  Report Type: 
  Country: None (occurrence: None)
  Receive Date: 20101222
  Receipt Date: 20101213
  Transmission Date: 20110411
  Serious: Yes (Hospitalization)
  Sender: FDA-Public Use
  Company Number: US-JNJFOC-20101205010

PATIENT
  Sex: Female
  Weight: 58.97 kg

DRUGS (5)
  1. REMICADE [Suspect]
     Indication: CROHN'S DISEASE
     Route: 042
  2. ZETIA [Concomitant]
     Route: 048
  3. FOLIC ACID [Concomitant]
     Indication: CROHN'S DISEASE
     Route: 048
  4. SULFASALAZINE [Concomitant]
     Indication: CROHN'S DISEASE
     Route: 048
  5. PRILOSEC [Concomitant]
     Indication: DYSPEPSIA
     Route: 048

REACTIONS (3)
  - HERPES ZOSTER [None]
  - HYPERTENSION [None]
  - VOMITING [None]
